FAERS Safety Report 8968211 (Version 19)
Quarter: 2015Q4

REPORT INFORMATION
  Report Type: Report from Study
  Country: CA (occurrence: CA)
  Receive Date: 20121217
  Receipt Date: 20151119
  Transmission Date: 20160305
  Serious: Yes (Hospitalization, Other)
  Sender: FDA-Public Use
  Company Number: PHHY2012CA080227

PATIENT
  Age: 58 Year
  Sex: Female

DRUGS (6)
  1. PREVACID [Concomitant]
     Active Substance: LANSOPRAZOLE
     Indication: PRODUCT USED FOR UNKNOWN INDICATION
     Dosage: 30 MG, QD
     Route: 065
  2. SANDOSTATIN LAR DEPOT [Suspect]
     Active Substance: OCTREOTIDE ACETATE
     Indication: NEUROENDOCRINE TUMOUR
     Dosage: 30 MG, QMO
     Route: 030
     Dates: start: 20120817
  3. SANDOSTATIN LAR DEPOT [Suspect]
     Active Substance: OCTREOTIDE ACETATE
     Indication: GASTRIC NEOPLASM
  4. SANDOSTATIN [Suspect]
     Active Substance: OCTREOTIDE ACETATE
     Indication: GASTRIC NEOPLASM
  5. DOMPERIDONE [Concomitant]
     Active Substance: DOMPERIDONE
     Indication: PRODUCT USED FOR UNKNOWN INDICATION
     Dosage: 10 MG, TID
     Route: 065
     Dates: start: 20150109, end: 20150128
  6. SANDOSTATIN [Suspect]
     Active Substance: OCTREOTIDE ACETATE
     Indication: NEUROENDOCRINE TUMOUR
     Dosage: TEST DOSE
     Route: 058
     Dates: start: 20120810, end: 20120810

REACTIONS (20)
  - Blood pressure increased [Unknown]
  - Neoplasm [Unknown]
  - Malignant neoplasm progression [Unknown]
  - Poor quality sleep [Unknown]
  - Vomiting [Unknown]
  - Abdominal distension [Unknown]
  - Pyrexia [Unknown]
  - Abdominal pain upper [Not Recovered/Not Resolved]
  - Faeces discoloured [Unknown]
  - Bowel movement irregularity [Recovered/Resolved]
  - Intestinal obstruction [Unknown]
  - Gallbladder pain [Recovered/Resolved]
  - Gastrooesophageal reflux disease [Unknown]
  - Frequent bowel movements [Recovered/Resolved]
  - Headache [Not Recovered/Not Resolved]
  - Blood pressure systolic increased [Unknown]
  - Faeces soft [Unknown]
  - Gastrointestinal obstruction [Unknown]
  - Hepatomegaly [Unknown]
  - Gallbladder non-functioning [Unknown]

NARRATIVE: CASE EVENT DATE: 20140424
